FAERS Safety Report 5478010-5 (Version None)
Quarter: 2007Q4

REPORT INFORMATION
  Report Type: 
  Country: None (occurrence: None)
  Receive Date: 20071005
  Receipt Date: 20070925
  Transmission Date: 20080405
  Serious: Yes (Other)
  Sender: FDA-Public Use
  Company Number: FR-JNJFOC-20070905105

PATIENT
  Age: 81 Year
  Sex: Female

DRUGS (7)
  1. TAVANIC [Suspect]
     Indication: BRONCHITIS
     Route: 048
  2. CORTICOSTEROID [Concomitant]
     Indication: BRONCHITIS
     Route: 065
  3. TRIATEC [Concomitant]
     Indication: HYPERTENSIVE HEART DISEASE
     Route: 065
  4. PRAVASTATIN [Concomitant]
     Indication: HYPERTENSIVE HEART DISEASE
     Route: 065
  5. VASTAREL [Concomitant]
     Indication: HYPERTENSIVE HEART DISEASE
     Route: 065
  6. SINTROM [Concomitant]
     Indication: HYPERTENSIVE HEART DISEASE
     Route: 065
  7. ALPHA NOS [Concomitant]
     Indication: HYPERTENSIVE HEART DISEASE
     Route: 065

REACTIONS (1)
  - BLOOD CREATININE INCREASED [None]
